FAERS Safety Report 17415291 (Version 1)
Quarter: 2020Q1

REPORT INFORMATION
  Report Type: Spontaneous
  Country: CN (occurrence: CN)
  Receive Date: 20200213
  Receipt Date: 20200213
  Transmission Date: 20200409
  Serious: Yes (Other)
  Sender: FDA-Public Use
  Company Number: CN-PFIZER INC-2020063160

PATIENT
  Age: 29 Year
  Sex: Female
  Weight: 51.5 kg

DRUGS (2)
  1. ANZATAX (PACLITAXEL) [Suspect]
     Active Substance: PACLITAXEL
     Indication: BREAST CANCER
     Dosage: 240 MG, 1X/DAY
     Route: 041
     Dates: start: 20191227, end: 20191227
  2. GLUCOSE INJECTION [Concomitant]
     Active Substance: DEXTROSE
     Indication: BREAST CANCER
     Dosage: 500 ML, 1X/DAY
     Route: 041
     Dates: start: 20191227, end: 20191227

REACTIONS (7)
  - Pruritus [Recovering/Resolving]
  - Vision blurred [Recovering/Resolving]
  - Nausea [Recovering/Resolving]
  - Tachypnoea [Recovering/Resolving]
  - Dizziness [Recovering/Resolving]
  - Vomiting [Recovering/Resolving]
  - Asthenia [Recovering/Resolving]

NARRATIVE: CASE EVENT DATE: 20191227
